FAERS Safety Report 5208835-2 (Version None)
Quarter: 2007Q1

REPORT INFORMATION
  Report Type: 
  Country: None (occurrence: None)
  Receive Date: 20070116
  Receipt Date: 20070109
  Transmission Date: 20070707
  Serious: Yes (Hospitalization)
  Sender: FDA-Public Use
  Company Number: PR-BRISTOL-MYERS SQUIBB COMPANY-13637236

PATIENT
  Age: 43 Year
  Sex: Male

DRUGS (2)
  1. BLINDED: ARIPIPRAZOLE [Suspect]
     Indication: BIPOLAR I DISORDER
     Route: 048
     Dates: start: 20060606
  2. LAMICTAL [Suspect]
     Route: 048
     Dates: start: 20060606

REACTIONS (1)
  - INGUINAL HERNIA [None]
